FAERS Safety Report 8462160-5 (Version None)
Quarter: 2012Q2

REPORT INFORMATION
  Report Type: 
  Country: None (occurrence: None)
  Receive Date: 20120625
  Receipt Date: 20120617
  Transmission Date: 20120825
  Serious: Yes (Other)
  Sender: FDA-Public Use
  Company Number: ES-JNJFOC-20120610756

PATIENT
  Sex: Female

DRUGS (1)
  1. ORTHO EVRA [Suspect]
     Indication: CONTRACEPTION
     Route: 062
     Dates: start: 20120101, end: 20120618

REACTIONS (6)
  - CHEST PAIN [None]
  - VISION BLURRED [None]
  - VOMITING [None]
  - HEADACHE [None]
  - PAIN IN EXTREMITY [None]
  - EYE PAIN [None]
